FAERS Safety Report 15258878 (Version 1)
Quarter: 2018Q3

REPORT INFORMATION
  Report Type: Spontaneous
  Country: US (occurrence: US)
  Receive Date: 20180718
  Receipt Date: 20180718
  Transmission Date: 20181010
  Serious: Yes (Other)
  Sender: FDA-Public Use
  Company Number: None

PATIENT
  Age: 36 Year
  Sex: Female
  Weight: 49.05 kg

DRUGS (2)
  1. SULFAMETHOXAZOLE/TMP GENERIC FOR BACTRIM DS [Suspect]
     Active Substance: SULFAMETHOXAZOLE\TRIMETHOPRIM
     Indication: BREAST CELLULITIS
     Dosage: ?          QUANTITY:1 TABLET(S);?
     Route: 048
     Dates: start: 20180709, end: 20180718
  2. CITALIPRAM [Concomitant]

REACTIONS (8)
  - Facial pain [None]
  - Rash macular [None]
  - Neck pain [None]
  - Skin burning sensation [None]
  - Ear pain [None]
  - Lip pain [None]
  - Lymphadenopathy [None]
  - Rash generalised [None]

NARRATIVE: CASE EVENT DATE: 20180718
